FAERS Safety Report 9849728 (Version 1)
Quarter: 2014Q1

REPORT INFORMATION
  Report Type: Spontaneous
  Country: TR (occurrence: None)
  Receive Date: 20140124
  Receipt Date: 20140124
  Transmission Date: 20141002
  Serious: Yes (Other)
  Sender: FDA-Public Use
  Company Number: NS_01319_2014

PATIENT
  Age: 64 Year
  Sex: Female

DRUGS (6)
  1. TRAMADOL (TRAMADOL) [Suspect]
     Indication: PROCEDURAL PAIN
  2. ALPRAZOLAM (ALPRAZOLAM) [Suspect]
     Indication: INSOMNIA
  3. LORAZEPAM (LORAZEPAM) [Suspect]
     Indication: INSOMNIA
  4. MIDAZOLAM (MIDAZOLAM) [Suspect]
     Indication: INSOMNIA
  5. BROMAZEPAM (BROMAZEPAM) [Suspect]
     Indication: INSOMNIA
  6. MIRTAZAPINE (MIRTAZAPINE) [Suspect]
     Indication: INSOMNIA

REACTIONS (2)
  - Status epilepticus [None]
  - Drug abuse [None]
